FAERS Safety Report 20660313 (Version 5)
Quarter: 2023Q4

REPORT INFORMATION
  Report Type: Report from Study
  Country: CA (occurrence: CA)
  Receive Date: 20220331
  Receipt Date: 20231109
  Transmission Date: 20240110
  Serious: Yes (Hospitalization, Other)
  Sender: FDA-Public Use
  Company Number: CA-NOVARTISPH-NVSC2021CA214608

PATIENT
  Sex: Male
  Weight: 98 kg

DRUGS (16)
  1. MAYZENT [Suspect]
     Active Substance: SIPONIMOD
     Indication: Secondary progressive multiple sclerosis
     Dosage: UNK UNK, QD
     Route: 048
     Dates: start: 20210319
  2. MAYZENT [Suspect]
     Active Substance: SIPONIMOD
     Dosage: 2 MG, QD
     Route: 065
     Dates: start: 202103
  3. MAYZENT [Suspect]
     Active Substance: SIPONIMOD
     Dosage: UNK, QD
     Route: 065
     Dates: start: 20210920
  4. MAYZENT [Suspect]
     Active Substance: SIPONIMOD
     Dosage: 1 MG, QD
     Route: 065
     Dates: start: 20220315
  5. IRBESARTAN [Suspect]
     Active Substance: IRBESARTAN
     Indication: Product used for unknown indication
     Dosage: UNK UNK, QD
     Route: 065
     Dates: start: 202105
  6. AMLODIPINE [Suspect]
     Active Substance: AMLODIPINE BESYLATE
     Indication: Product used for unknown indication
     Dosage: UNK UNK, QD
     Route: 065
     Dates: start: 202105
  7. GLICLAZIDE [Suspect]
     Active Substance: GLICLAZIDE
     Indication: Product used for unknown indication
     Dosage: UNK UNK, QD
     Route: 065
     Dates: start: 202105
  8. ROSUVASTATIN [Suspect]
     Active Substance: ROSUVASTATIN
     Indication: Product used for unknown indication
     Dosage: UNK UNK, QD
     Route: 065
     Dates: start: 202105
  9. PERINDOPRIL [Suspect]
     Active Substance: PERINDOPRIL
     Indication: Product used for unknown indication
     Dosage: UNK UNK, QD
     Route: 065
     Dates: start: 202105
  10. METFORMIN [Suspect]
     Active Substance: METFORMIN HYDROCHLORIDE
     Indication: Product used for unknown indication
     Dosage: 3 DOSAGE FORM, BID
     Route: 065
     Dates: start: 202105
  11. NOVORAPID [Concomitant]
     Active Substance: INSULIN ASPART
     Indication: Product used for unknown indication
     Dosage: UNK, QID (10 UNITS)
     Route: 058
     Dates: start: 202105
  12. JARDIANCE [Concomitant]
     Active Substance: EMPAGLIFLOZIN
     Indication: Product used for unknown indication
     Dosage: UNK, QD
     Route: 065
     Dates: start: 202105
  13. SALILOTHIN [Concomitant]
     Indication: Product used for unknown indication
     Dosage: UNK, QD
     Route: 065
     Dates: start: 202105
  14. SEMAGLUTIDE [Concomitant]
     Active Substance: SEMAGLUTIDE
     Indication: Product used for unknown indication
     Dosage: UNK, QW
     Route: 058
     Dates: start: 202105
  15. TRESIBA [Concomitant]
     Active Substance: INSULIN DEGLUDEC
     Indication: Product used for unknown indication
     Dosage: UNK, PRN
     Route: 058
  16. TRESIBA [Concomitant]
     Active Substance: INSULIN DEGLUDEC
     Dosage: UNK, PRN
     Route: 058

REACTIONS (15)
  - COVID-19 [Not Recovered/Not Resolved]
  - Lymphopenia [Not Recovered/Not Resolved]
  - Dysmetria [Unknown]
  - White blood cell count decreased [Unknown]
  - Obstructive sleep apnoea syndrome [Unknown]
  - Urine abnormality [Unknown]
  - Urinary tract infection [Not Recovered/Not Resolved]
  - Haematuria [Unknown]
  - Gait spastic [Unknown]
  - Hypokinesia [Unknown]
  - Muscular weakness [Unknown]
  - Musculoskeletal discomfort [Unknown]
  - Muscle spasticity [Unknown]
  - Urinary incontinence [Not Recovered/Not Resolved]
  - Expanded disability status scale score increased [Unknown]

NARRATIVE: CASE EVENT DATE: 20230507
